FAERS Safety Report 8658029 (Version 2)
Quarter: 2012Q4

REPORT INFORMATION
  Report Type: 
  Country: US (occurrence: US)
  Receive Date: 20120710
  Receipt Date: 20120920
  Transmission Date: 20130627
  Serious: Yes (Hospitalization)
  Sender: FDA-Public Use
  Company Number: US-BAYER-2012-067710

PATIENT
  Age: 24 Year
  Sex: Female
  Weight: 74.83 kg

DRUGS (27)
  1. YAZ [Suspect]
     Indication: ACNE
     Dosage: UNK
     Dates: start: 201004, end: 201108
  2. YAZ [Suspect]
     Indication: PREMENSTRUAL SYNDROME
  3. YAZ [Suspect]
     Indication: DYSMENORRHOEA
  4. YAZ [Suspect]
     Indication: CYST
  5. GIANVI [Suspect]
     Indication: ACNE
     Dosage: UNK
     Dates: start: 201009, end: 201107
  6. GIANVI [Suspect]
     Indication: PREMENSTRUAL SYNDROME
  7. GIANVI [Suspect]
     Indication: DYSMENORRHOEA
  8. GIANVI [Suspect]
     Indication: CYST
  9. ANTIBIOTICS [Concomitant]
     Dosage: UNK
     Dates: start: 2002
  10. EXCEDRIN [ACETYLSALICYLIC ACID,CAFFEINE,PARACETAMOL,SALICYLAMIDE] [Concomitant]
     Indication: MIGRAINE
     Dosage: UNK
     Dates: start: 2010
  11. ASMANEX [Concomitant]
     Indication: ASTHMA
     Dosage: UNK
     Dates: start: 2008
  12. ASMANEX [Concomitant]
     Indication: ASTHMA
     Dosage: UNK
     Dates: start: 2011
  13. PROVENTIL HFA [Concomitant]
     Indication: ASTHMA
     Dosage: UNK
     Dates: start: 2008
  14. PROVENTIL HFA [Concomitant]
     Indication: ASTHMA
     Dosage: UNK
     Dates: start: 2011
  15. NAPROXEN [Concomitant]
     Indication: DYSMENORRHOEA
     Dosage: 550 mg, BID
     Dates: start: 2010, end: 2011
  16. MOTRIN [Concomitant]
     Dosage: UNK
     Dates: start: 2011
  17. IBUPROFEN [Concomitant]
     Dosage: UNK
     Dates: start: 2011
  18. ALLEGRA [Concomitant]
     Indication: MULTIPLE ALLERGIES
     Dosage: UNK
     Dates: start: 2004, end: 2008
  19. ALLEGRA-D [Concomitant]
     Indication: MULTIPLE ALLERGIES
     Dosage: 60-120 mg ER tablets, BID
     Route: 048
     Dates: start: 2004, end: 2008
  20. FLONASE [Concomitant]
     Route: 045
  21. ASTEPRO [Concomitant]
  22. NASONEX [Concomitant]
     Route: 045
  23. EPIPEN [Concomitant]
     Dosage: 0.3 mg,
  24. FLUCONAZOLE [Concomitant]
  25. METHYLPRED [Concomitant]
     Dosage: 4 mg, pak
  26. BENZONATATE [Concomitant]
  27. ALLERGY DROPS [Concomitant]

REACTIONS (1)
  - Thrombophlebitis superficial [None]
